FAERS Safety Report 9295483 (Version 4)
Quarter: 2013Q3

REPORT INFORMATION
  Report Type: Spontaneous
  Country: US (occurrence: US)
  Receive Date: 20130517
  Receipt Date: 20130726
  Transmission Date: 20140515
  Serious: Yes (Death, Life-Threatening, Hospitalization, Other)
  Sender: FDA-Public Use
  Company Number: US-JNJFOC-20130504032

PATIENT
  Age: 63 Year
  Sex: Male
  Weight: 77 kg

DRUGS (7)
  1. XARELTO [Suspect]
     Indication: DEEP VEIN THROMBOSIS
     Route: 048
     Dates: end: 20130504
  2. XARELTO [Suspect]
     Indication: DEEP VEIN THROMBOSIS
     Route: 048
     Dates: start: 20121213
  3. DILANTIN [Suspect]
     Indication: CONVULSION
     Route: 065
  4. PHENOBARBITAL [Suspect]
     Indication: CONVULSION
     Route: 048
  5. TIZANIDINE [Concomitant]
     Route: 048
  6. PHENYTOIN [Concomitant]
     Route: 048
  7. NORCO [Concomitant]
     Dosage: 7.5/325 MG
     Route: 048

REACTIONS (3)
  - Death [Fatal]
  - Convulsion [Recovered/Resolved]
  - Haemorrhage intracranial [Recovering/Resolving]
